FAERS Safety Report 13709706 (Version 4)
Quarter: 2018Q2

REPORT INFORMATION
  Report Type: Report from Study
  Country: JP (occurrence: JP)
  Receive Date: 20170703
  Receipt Date: 20180426
  Transmission Date: 20180711
  Serious: Yes (Hospitalization)
  Sender: FDA-Public Use
  Company Number: JP-ACTELION-A-CH2017-155789

PATIENT
  Age: 78 Year
  Sex: Female

DRUGS (15)
  1. TRACLEER [Suspect]
     Active Substance: BOSENTAN
     Dosage: 62.5 MG, BID
     Route: 048
     Dates: start: 20170113, end: 20170126
  2. TRACLEER [Suspect]
     Active Substance: BOSENTAN
     Indication: SKIN ULCER
     Dosage: 125 MG, BID
     Route: 048
     Dates: start: 20170127, end: 20170309
  3. SELECTOL [Concomitant]
     Active Substance: CELIPROLOL
  4. VALSARTAN. [Concomitant]
     Active Substance: VALSARTAN
  5. JANUVIA [Concomitant]
     Active Substance: SITAGLIPTIN PHOSPHATE
  6. NIFEDIPINE. [Concomitant]
     Active Substance: NIFEDIPINE
  7. AMITIZA [Concomitant]
     Active Substance: LUBIPROSTONE
  8. BEZATOL [Concomitant]
     Active Substance: BEZAFIBRATE
  9. OXYGEN. [Concomitant]
     Active Substance: OXYGEN
     Dosage: UNK
  10. BERAPROST NA [Concomitant]
     Active Substance: BERAPROST SODIUM
  11. GASMOTIN [Concomitant]
     Active Substance: MOSAPRIDE CITRATE
  12. URSO [Concomitant]
     Active Substance: URSODIOL
  13. RABEPRAZOLE NA [Concomitant]
     Active Substance: RABEPRAZOLE SODIUM
  14. JUVELA N [Concomitant]
     Active Substance: TOCOPHERYL NICOTINATE, D-.ALPHA.
  15. INDERAL [Concomitant]
     Active Substance: PROPRANOLOL HYDROCHLORIDE

REACTIONS (5)
  - Hypoxia [Recovering/Resolving]
  - Dyspnoea [Recovering/Resolving]
  - Therapy non-responder [Unknown]
  - Oedema peripheral [Recovering/Resolving]
  - Cardiac failure congestive [Recovering/Resolving]

NARRATIVE: CASE EVENT DATE: 20170224
